FAERS Safety Report 10670709 (Version 1)
Quarter: 2014Q4

REPORT INFORMATION
  Report Type: Spontaneous
  Country: US (occurrence: US)
  Receive Date: 20141223
  Receipt Date: 20141223
  Transmission Date: 20150529
  Serious: No
  Sender: FDA-Public Use
  Company Number: US-MYLANLABS-2014M1001496

PATIENT
  Sex: Female

DRUGS (1)
  1. SELEGILINE [Suspect]
     Active Substance: SELEGILINE
     Dosage: 5 MG, BID
     Route: 048
     Dates: start: 2014

REACTIONS (3)
  - Tremor [Not Recovered/Not Resolved]
  - Drug effect decreased [Not Recovered/Not Resolved]
  - Drug administration error [Not Recovered/Not Resolved]

NARRATIVE: CASE EVENT DATE: 2014
